FAERS Safety Report 8925853 (Version 3)
Quarter: 2013Q1

REPORT INFORMATION
  Report Type: Spontaneous
  Country: JP (occurrence: JP)
  Receive Date: 20121126
  Receipt Date: 20130130
  Transmission Date: 20140127
  Serious: Yes (Other)
  Sender: FDA-Public Use
  Company Number: JP-B.I. PHARMACEUTICALS,INC./RIDGEFIELD-2012-BI-00879GD

PATIENT
  Age: 84 Year
  Sex: Female
  Weight: 46 kg

DRUGS (2)
  1. PRADAXA [Suspect]
     Indication: ATRIAL FIBRILLATION
     Dosage: 220 MG
     Route: 048
  2. CALONAL [Concomitant]
     Indication: CHONDROCALCINOSIS PYROPHOSPHATE
     Dosage: 400 MG
     Route: 048
     Dates: start: 20120428

REACTIONS (5)
  - Small intestinal haemorrhage [Recovered/Resolved]
  - Gastrointestinal telangiectasia [Recovered/Resolved]
  - Anaemia [Recovered/Resolved]
  - Faeces discoloured [Recovered/Resolved]
  - Malaise [Unknown]
